FAERS Safety Report 7198464-6 (Version None)
Quarter: 2010Q4

REPORT INFORMATION
  Report Type: 
  Country: None (occurrence: None)
  Receive Date: 20101227
  Receipt Date: 20101220
  Transmission Date: 20110411
  Serious: Yes (Other)
  Sender: FDA-Public Use
  Company Number: PHHY2010JP87369

PATIENT
  Age: 70 Year
  Sex: Female

DRUGS (3)
  1. CYCLOSPORINE [Suspect]
     Indication: APLASIA PURE RED CELL
     Dosage: 3 MG/KG
     Dates: start: 20011201
  2. AZATHIOPRINE [Concomitant]
     Indication: IMMUNOSUPPRESSION
     Dosage: 50 MG/DAY
     Dates: start: 20020401
  3. PREDNISOLONE [Concomitant]
     Dosage: 25 MG/DAY

REACTIONS (3)
  - APLASIA PURE RED CELL [None]
  - MARROW HYPERPLASIA [None]
  - TRANSFUSION [None]
